FAERS Safety Report 7408366-5 (Version None)
Quarter: 2011Q2

REPORT INFORMATION
  Report Type: 
  Country: None (occurrence: None)
  Receive Date: 20110412
  Receipt Date: 20110405
  Transmission Date: 20111010
  Serious: Yes (Death, Hospitalization)
  Sender: FDA-Public Use
  Company Number: FR-JNJFOC-20110103528

PATIENT
  Sex: Male
  Weight: 84 kg

DRUGS (13)
  1. RISPERDAL [Suspect]
     Route: 048
  2. DEPAKOTE [Suspect]
     Indication: AFFECTIVE DISORDER
     Route: 048
     Dates: start: 20100811, end: 20101230
  3. NICOPATCH [Concomitant]
     Indication: PRODUCT USED FOR UNKNOWN INDICATION
  4. RISPERDAL [Suspect]
     Indication: PRODUCT USED FOR UNKNOWN INDICATION
     Route: 048
  5. RISPERDAL [Suspect]
     Dosage: TREATED BETWEEN 30-SEP-2010 AND 26-OCT-2010
     Route: 048
  6. XANAX [Concomitant]
     Indication: PRODUCT USED FOR UNKNOWN INDICATION
     Route: 048
     Dates: start: 20100811, end: 20101230
  7. RISPERDAL CONSTA [Suspect]
     Indication: SCHIZOPHRENIA
     Route: 030
     Dates: start: 20100930, end: 20101230
  8. RISPERDAL CONSTA [Suspect]
     Indication: PSYCHOTIC DISORDER
     Route: 030
     Dates: start: 20100930, end: 20101230
  9. FORLAX [Concomitant]
     Indication: PRODUCT USED FOR UNKNOWN INDICATION
  10. RISPERDAL [Suspect]
     Route: 048
  11. LOXAPINE HCL [Suspect]
     Indication: PSYCHOTIC DISORDER
     Route: 048
     Dates: start: 20100811, end: 20101230
  12. PARKINANE [Concomitant]
     Indication: PRODUCT USED FOR UNKNOWN INDICATION
     Route: 048
     Dates: start: 20100811, end: 20101230
  13. ACETAMINOPHEN [Concomitant]
     Indication: PAIN

REACTIONS (2)
  - ISCHAEMIC CEREBRAL INFARCTION [None]
  - COMA [None]
